FAERS Safety Report 4341413-6 (Version None)
Quarter: 2004Q2

REPORT INFORMATION
  Report Type: 
  Country: None (occurrence: None)
  Receive Date: 20040415
  Receipt Date: 20040405
  Transmission Date: 20050107
  Serious: Yes (Death, Hospitalization)
  Sender: FDA-Public Use
  Company Number: JP-JNJFOC-20040304423

PATIENT
  Age: 59 Year
  Sex: Female
  Weight: 60 kg

DRUGS (15)
  1. REMICADE [Suspect]
     Indication: RHEUMATOID ARTHRITIS
     Dosage: 3 MG/KG, 1 IN 1 AS NECESSARY, INTRAVENOUS DRIP
     Route: 041
     Dates: start: 20040129, end: 20040129
  2. REMICADE [Suspect]
     Indication: RHEUMATOID ARTHRITIS
     Dosage: 3 MG/KG, 1 IN 1 AS NECESSARY, INTRAVENOUS DRIP
     Route: 041
     Dates: start: 20040212, end: 20040212
  3. RHEUMATREX [Suspect]
     Indication: RHEUMATOID ARTHRITIS
     Dosage: SEE IMAGE
     Route: 048
     Dates: start: 20031203, end: 20031216
  4. RHEUMATREX [Suspect]
     Indication: RHEUMATOID ARTHRITIS
     Dosage: SEE IMAGE
     Route: 048
     Dates: start: 20031217, end: 20040310
  5. RHEUMATREX [Suspect]
     Indication: RHEUMATOID ARTHRITIS
     Dosage: SEE IMAGE
     Route: 048
     Dates: start: 19970101
  6. DECADRON [Suspect]
     Indication: RHEUMATOID ARTHRITIS
     Dosage: 1.75 MG, IN 1 DAY, ORAL
     Route: 048
     Dates: start: 20020401
  7. CALCIUM LACTATE (CALCIUM LACTATE) POWDER [Concomitant]
  8. VASOLAN (VERAPAMIL HYDROCHLORIDE) TABLETS [Concomitant]
  9. NEUQUINON (UBIDECARENONE) TABLETS [Concomitant]
  10. LASIX [Concomitant]
  11. SLOW-K [Concomitant]
  12. ALFAROL (ALFACALCIDOL) TABLETS [Concomitant]
  13. BENET (ALL OTHER THERAPEUTIC PRODUCTS) TABLETS [Concomitant]
  14. PELEX (PELEX) GRANULES [Concomitant]
  15. MUCOSTA (REBAMIPIDE) TABLETS [Concomitant]

REACTIONS (22)
  - ALANINE AMINOTRANSFERASE INCREASED [None]
  - ASPARTATE AMINOTRANSFERASE INCREASED [None]
  - BLOOD CREATININE INCREASED [None]
  - BLOOD LACTATE DEHYDROGENASE INCREASED [None]
  - BLOOD UREA INCREASED [None]
  - C-REACTIVE PROTEIN INCREASED [None]
  - CARDIAC FAILURE [None]
  - CONCOMITANT DISEASE AGGRAVATED [None]
  - CUSHING'S SYNDROME [None]
  - DIFFICULTY IN WALKING [None]
  - DRUG INEFFECTIVE [None]
  - HYPOXIA [None]
  - IATROGENIC INJURY [None]
  - INFECTION [None]
  - INTERSTITIAL LUNG DISEASE [None]
  - MULTI-ORGAN FAILURE [None]
  - PLATELET COUNT DECREASED [None]
  - PROTEIN TOTAL DECREASED [None]
  - RED BLOOD CELL COUNT DECREASED [None]
  - SECONDARY AMYLOIDOSIS [None]
  - WHITE BLOOD CELL COUNT DECREASED [None]
  - WHITE BLOOD CELL COUNT INCREASED [None]
